FAERS Safety Report 5127169-8 (Version None)
Quarter: 2006Q4

REPORT INFORMATION
  Report Type: 
  Country: None (occurrence: None)
  Receive Date: 20061010
  Receipt Date: 20060908
  Transmission Date: 20070319
  Serious: Yes (Disabling)
  Sender: FDA-Public Use
  Company Number: 2006RL000350

PATIENT
  Sex: Female

DRUGS (10)
  1. OMACOR [Suspect]
     Indication: BLOOD TRIGLYCERIDES INCREASED
     Dosage: 1 GM; BID; PO
     Route: 048
     Dates: start: 20060602, end: 20060714
  2. TRICOR [Suspect]
     Indication: LIPIDS ABNORMAL
     Dosage: 145 MG
     Dates: end: 20060714
  3. LIPITOR [Suspect]
     Indication: LIPIDS ABNORMAL
     Dosage: 80 MG
     Dates: end: 20060714
  4. SYNTHROID [Concomitant]
  5. ARICEPT [Concomitant]
  6. ASPIRIN [Concomitant]
  7. PEPCID [Concomitant]
  8. LANTUS [Concomitant]
  9. HUMALOG [Concomitant]
  10. DITROPAN [Concomitant]

REACTIONS (6)
  - ASTHENIA [None]
  - BLOOD CREATINE PHOSPHOKINASE ABNORMAL [None]
  - DIARRHOEA [None]
  - DRUG INTERACTION [None]
  - LIVER FUNCTION TEST ABNORMAL [None]
  - MYALGIA [None]
